FAERS Safety Report 6532150-8 (Version None)
Quarter: 2010Q1

REPORT INFORMATION
  Report Type: 
  Country: None (occurrence: None)
  Receive Date: 20100108
  Receipt Date: 20091228
  Transmission Date: 20100710
  Serious: Yes (Other)
  Sender: FDA-Public Use
  Company Number: AT-BRISTOL-MYERS SQUIBB COMPANY-14913685

PATIENT
  Age: 63 Year
  Sex: Male
  Weight: 105 kg

DRUGS (8)
  1. CISPLATIN [Suspect]
     Indication: URETHRAL CANCER
  2. PARACETAMOL TABS [Interacting]
  3. LISINOPRIL AND HYDROCHLOROTHIAZIDE [Interacting]
     Indication: HYPERTENSION
     Dosage: FORMULATION=TABLETS, ONCE IN THE MORNING
  4. METFORMIN HCL [Interacting]
     Indication: TYPE 2 DIABETES MELLITUS
     Dosage: ONCE DAILY AT NIGHT
  5. GEMCITABINE [Interacting]
     Indication: URETHRAL CANCER
  6. PIPERACILLIN AND TAZOBACTAM [Interacting]
     Indication: URINARY TRACT INFECTION
     Route: 042
  7. LINEZOLID [Concomitant]
     Indication: URINARY TRACT INFECTION STAPHYLOCOCCAL
  8. ESOMEPRAZOLE SODIUM (NEXIUM) [Concomitant]
     Dosage: TABLET

REACTIONS (2)
  - DRUG INTERACTION [None]
  - RENAL IMPAIRMENT [None]
